FAERS Safety Report 8146998-X (Version None)
Quarter: 2012Q1

REPORT INFORMATION
  Report Type: 
  Country: None (occurrence: None)
  Receive Date: 20120217
  Receipt Date: 20120210
  Transmission Date: 20120608
  Serious: Yes (Other)
  Sender: FDA-Public Use
  Company Number: HR-ASTRAZENECA-2012SE09179

PATIENT
  Sex: Male
  Weight: 100 kg

DRUGS (7)
  1. CRESTOR [Suspect]
     Indication: HYPERCHOLESTEROLAEMIA
     Route: 048
     Dates: start: 20110530, end: 20110601
  2. TERTENSIF SR [Suspect]
     Indication: HYPERTENSION
     Route: 048
     Dates: start: 20110530, end: 20110601
  3. VALSACOR [Suspect]
     Indication: HYPERTENSION
     Route: 048
     Dates: start: 20110530, end: 20110601
  4. NORVASC [Concomitant]
     Indication: HYPERTENSION
     Route: 048
     Dates: start: 20090101
  5. AMARYL [Concomitant]
     Indication: DIABETES MELLITUS
     Route: 048
     Dates: start: 20050101
  6. BYOL [Concomitant]
     Indication: HYPERTENSION
     Route: 048
     Dates: start: 20090101
  7. GLUFORMIN [Concomitant]
     Indication: DIABETES MELLITUS
     Route: 048
     Dates: start: 20050101

REACTIONS (3)
  - ANGIOEDEMA [None]
  - FACE OEDEMA [None]
  - OEDEMA PERIPHERAL [None]
